FAERS Safety Report 8196397-X (Version None)
Quarter: 2012Q1

REPORT INFORMATION
  Report Type: 
  Country: None (occurrence: None)
  Receive Date: 20120229
  Receipt Date: 20110228
  Transmission Date: 20120608
  Serious: No
  Sender: FDA-Public Use
  Company Number: US-2011-10105

PATIENT
  Sex: Male

DRUGS (3)
  1. SAMSCA [Suspect]
     Dosage: 15 MG MILLIGRAM(S), DAILY DOSE, ORAL30 MG MILLIGRAM(S), DAILY DOSE, ORAL 60 MG MILLIGRAM(S), DAILY D
     Route: 048
     Dates: start: 20110202, end: 20110205
  2. SAMSCA [Suspect]
     Dosage: 15 MG MILLIGRAM(S), DAILY DOSE, ORAL30 MG MILLIGRAM(S), DAILY DOSE, ORAL 60 MG MILLIGRAM(S), DAILY D
     Route: 048
     Dates: start: 20110210, end: 20110212
  3. SAMSCA [Suspect]
     Dosage: 15 MG MILLIGRAM(S), DAILY DOSE, ORAL30 MG MILLIGRAM(S), DAILY DOSE, ORAL 60 MG MILLIGRAM(S), DAILY D
     Route: 048
     Dates: start: 20110207, end: 20110210

REACTIONS (1)
  - DRUG INEFFECTIVE [None]
